FAERS Safety Report 17886143 (Version 1)
Quarter: 2020Q2

REPORT INFORMATION
  Report Type: Spontaneous
  Country: US (occurrence: US)
  Receive Date: 20200611
  Receipt Date: 20200611
  Transmission Date: 20200714
  Serious: Yes (Other)
  Sender: FDA-Public Use
  Company Number: US-TEVA-2020-US-1245473

PATIENT
  Age: 74 Year
  Sex: Female
  Weight: 52 kg

DRUGS (5)
  1. PROAIR RESPICLICK [Suspect]
     Active Substance: ALBUTEROL SULFATE
     Indication: DYSPNOEA
     Dosage: INHALE 1 PUFF BY MOUTH EVERY 4 HOURS AS NEEDED FOR SHORTNESS OF BREATH OR WHEEZING
     Route: 065
     Dates: start: 20190207
  2. FLUNISOLIDE. [Concomitant]
     Active Substance: FLUNISOLIDE
     Route: 065
  3. BENADRYL [Concomitant]
     Active Substance: DIPHENHYDRAMINE HYDROCHLORIDE
     Route: 065
  4. PROAIR RESPICLICK [Suspect]
     Active Substance: ALBUTEROL SULFATE
     Indication: ALLERGIC COUGH
  5. PROAIR RESPICLICK [Suspect]
     Active Substance: ALBUTEROL SULFATE
     Indication: WHEEZING

REACTIONS (1)
  - Choking [Unknown]

NARRATIVE: CASE EVENT DATE: 20190207
